FAERS Safety Report 8776874 (Version 1)
Quarter: 2012Q4

REPORT INFORMATION
  Report Type: 
  Country: US (occurrence: US)
  Receive Date: 20120911
  Receipt Date: 20120911
  Transmission Date: 20130627
  Serious: Yes (Hospitalization)
  Sender: FDA-Public Use
  Company Number: US-AMGEN-USASP2012056926

PATIENT
  Age: 60 Year
  Sex: Female

DRUGS (1)
  1. ENBREL [Suspect]
     Indication: RHEUMATOID ARTHRITIS
     Dosage: 50 mg, qwk
     Route: 058
     Dates: start: 20110701, end: 20120813

REACTIONS (5)
  - Sciatica [Recovered/Resolved]
  - Herpes zoster [Recovered/Resolved]
  - Gait disturbance [Recovered/Resolved]
  - Intervertebral disc protrusion [Recovered/Resolved]
  - Walking aid user [Not Recovered/Not Resolved]
